FAERS Safety Report 17475974 (Version 1)
Quarter: 2020Q1

REPORT INFORMATION
  Report Type: Spontaneous
  Country: DE (occurrence: DE)
  Receive Date: 20200228
  Receipt Date: 20200228
  Transmission Date: 20200409
  Serious: Yes (Hospitalization, Other)
  Sender: FDA-Public Use
  Company Number: DE-JAZZ-2019-DE-014041

PATIENT
  Age: 70 Year
  Sex: Female

DRUGS (3)
  1. VYXEOS [Suspect]
     Active Substance: CYTARABINE\DAUNORUBICIN
     Indication: ACUTE MYELOID LEUKAEMIA
     Dosage: 70/160 MG, DAY 1,3 AND 5
     Route: 042
     Dates: start: 20190924, end: 20190929
  2. IVEMEND [Concomitant]
     Active Substance: FOSAPREPITANT DIMEGLUMINE
     Indication: PRODUCT USED FOR UNKNOWN INDICATION
     Dosage: 150 MG, DAY 1
     Route: 042
     Dates: start: 20190924
  3. GRANISETRON [Concomitant]
     Active Substance: GRANISETRON
     Indication: PRODUCT USED FOR UNKNOWN INDICATION
     Dosage: 3 MG, DAY 1,3,5
     Route: 042
     Dates: start: 20190924

REACTIONS (2)
  - Pneumonia [Not Recovered/Not Resolved]
  - Bone marrow failure [Not Recovered/Not Resolved]
